FAERS Safety Report 19053230 (Version 1)
Quarter: 2021Q1

REPORT INFORMATION
  Report Type: Spontaneous
  Country: US (occurrence: US)
  Receive Date: 20210325
  Receipt Date: 20210325
  Transmission Date: 20210420
  Serious: Yes (Life-Threatening, Hospitalization, Other)
  Sender: FDA-Public Use
  Company Number: US-35507-2021-03591

PATIENT
  Sex: Male
  Weight: 3.3 kg

DRUGS (9)
  1. ESCITALOPRAM [Suspect]
     Active Substance: ESCITALOPRAM OXALATE
     Indication: DEPRESSION
  2. DINOPROSTONE. [Suspect]
     Active Substance: DINOPROSTONE
     Indication: INDUCED LABOUR
     Dosage: 10 MILLIGRAM?TOTAL, TOPICAL VAGINAL
     Route: 064
  3. SODIUM CHLORIDE. [Suspect]
     Active Substance: SODIUM CHLORIDE
     Indication: PRODUCT USED FOR UNKNOWN INDICATION
     Dosage: 1 MEGA?INTERNATIONAL UNIT PER MINUTE
     Route: 064
  4. SERTRALINE [Suspect]
     Active Substance: SERTRALINE HYDROCHLORIDE
     Indication: PANIC ATTACK
     Dosage: 50 MILLIGRAM, QD
     Route: 064
  5. OXYTOCIN. [Suspect]
     Active Substance: OXYTOCIN
     Indication: PRODUCT USED FOR UNKNOWN INDICATION
     Dosage: 1000 MILLILITER (20 UNIT IN 1000 ML SODIUM CHLORIDE)
     Route: 064
  6. PRENATAL VITAMINS [MINERALS NOS;VITAMINS NOS] [Suspect]
     Active Substance: MINERALS\VITAMINS
     Indication: VITAMIN SUPPLEMENTATION
     Dosage: UNK
     Route: 064
  7. SERTRALINE [Suspect]
     Active Substance: SERTRALINE HYDROCHLORIDE
     Indication: DEPRESSION
     Dosage: 100 MILLIGRAM, QD
     Route: 064
  8. NITROFURANTOIN. [Suspect]
     Active Substance: NITROFURANTOIN
     Indication: URINARY TRACT INFECTION
     Dosage: 100 MILLIGRAM, QD
     Route: 064
  9. ESCITALOPRAM [Suspect]
     Active Substance: ESCITALOPRAM OXALATE
     Indication: ANXIETY
     Dosage: UNK
     Route: 064

REACTIONS (9)
  - Foetal exposure during pregnancy [Unknown]
  - Respiratory distress [Recovered/Resolved]
  - Hypoxia [Recovered/Resolved]
  - Neonatal behavioural syndrome [Recovered/Resolved]
  - Hypoglycaemia [Recovered/Resolved]
  - Respiratory depression [Recovered/Resolved]
  - Motor dysfunction [Recovered/Resolved]
  - Cyanosis [Recovered/Resolved]
  - Poor feeding infant [Recovered/Resolved]
